FAERS Safety Report 7127895-5 (Version None)
Quarter: 2010Q4

REPORT INFORMATION
  Report Type: 
  Country: None (occurrence: None)
  Receive Date: 20101112
  Receipt Date: 20101110
  Transmission Date: 20110411
  Serious: Yes (Death)
  Sender: FDA-Public Use
  Company Number: AE-1110-358

PATIENT
  Age: 58 Year
  Sex: Female

DRUGS (8)
  1. LIDODERM [Suspect]
     Indication: CANCER PAIN
     Dates: start: 20090901
  2. PENTANYL PATCH [Concomitant]
  3. FENTORA [Concomitant]
  4. KLONOPIN [Concomitant]
  5. NEURONTIN [Concomitant]
  6. REGLAN [Concomitant]
  7. ZESTRIL [Concomitant]
  8. PHENERGAN [Concomitant]

REACTIONS (1)
  - MESOTHELIOMA [None]
